FAERS Safety Report 4316129-2 (Version None)
Quarter: 2004Q1

REPORT INFORMATION
  Report Type: 
  Country: None (occurrence: None)
  Receive Date: 20040310
  Receipt Date: 20040225
  Transmission Date: 20041129
  Serious: Yes (Hospitalization)
  Sender: FDA-Public Use
  Company Number: 2000-BP-02249

PATIENT
  Age: 3 Month
  Sex: Female

DRUGS (4)
  1. VIRAMUNE [Suspect]
     Indication: PROPHYLAXIS AGAINST HIV INFECTION
     Dosage: 5.2 ML (TWICE WEEKLY) PO
     Route: 048
     Dates: start: 20000804, end: 20001107
  2. BACTRIM (BACTRIM) (NR) [Concomitant]
  3. AQUEOUS CREAM (AQUEOUS CREAM) (CR) [Concomitant]
  4. MYCOSTATIN DROPS (NYSTATIN) (NR) [Concomitant]

REACTIONS (13)
  - BLOOD BICARBONATE DECREASED [None]
  - BLOOD POTASSIUM INCREASED [None]
  - BLOOD SODIUM DECREASED [None]
  - COUGH [None]
  - HAEMOGLOBIN DECREASED [None]
  - PALLOR [None]
  - PETECHIAE [None]
  - PHARYNGITIS [None]
  - RASH ERYTHEMATOUS [None]
  - RASH PAPULAR [None]
  - SEPSIS [None]
  - VIRAEMIA [None]
  - VOMITING [None]
